FAERS Safety Report 15865257 (Version 2)
Quarter: 2019Q1

REPORT INFORMATION
  Report Type: Spontaneous
  Country: US (occurrence: US)
  Receive Date: 20190124
  Receipt Date: 20190127
  Transmission Date: 20190417
  Serious: Yes (Hospitalization)
  Sender: FDA-Public Use
  Company Number: US-JNJFOC-20190116923

PATIENT
  Age: 9 Month
  Sex: Female
  Weight: 10.43 kg

DRUGS (2)
  1. AVEENO BABY CALMING COMFORT [Suspect]
     Active Substance: DIMETHICONE
     Indication: PRODUCT USED FOR UNKNOWN INDICATION
     Dosage: PEA SIZE AMOUNT
     Route: 061
  2. AVEENO BABY CALMING COMFORT [Suspect]
     Active Substance: DIMETHICONE
     Indication: PRODUCT USED FOR UNKNOWN INDICATION
     Dosage: PEA SIZE AMOUNT EVERY DAY TO EVERY OTHER DAY
     Route: 061

REACTIONS (5)
  - Breast cyst [Not Recovered/Not Resolved]
  - Abdominal pain upper [Unknown]
  - Hormone level abnormal [Not Recovered/Not Resolved]
  - Product label issue [Unknown]
  - Breast disorder [Not Recovered/Not Resolved]

NARRATIVE: CASE EVENT DATE: 2018
